FAERS Safety Report 5828879-7 (Version None)
Quarter: 2008Q3

REPORT INFORMATION
  Report Type: 
  Country: None (occurrence: None)
  Receive Date: 20080729
  Receipt Date: 20080715
  Transmission Date: 20090109
  Serious: Yes (Death)
  Sender: FDA-Public Use
  Company Number: S08-FRA-02213-01

PATIENT
  Age: 43 Year
  Sex: Male
  Weight: 68 kg

DRUGS (5)
  1. ESCITALOPRAM OXALATE [Suspect]
     Indication: DEPRESSION
     Dosage: 10 MG (10 MG, 1 IN 1 D), ORAL, 5 MG (5 MG, 1 IN 1 D), ORAL
     Route: 048
     Dates: start: 20080318, end: 20080414
  2. ESCITALOPRAM OXALATE [Suspect]
     Indication: DEPRESSION
     Dosage: 10 MG (10 MG, 1 IN 1 D), ORAL, 5 MG (5 MG, 1 IN 1 D), ORAL
     Route: 048
     Dates: start: 20080415, end: 20080430
  3. AOTAL (ACAMPROSATE) [Concomitant]
  4. STRESAM (ETIFOXINE) [Concomitant]
  5. ZOLPIDEM TARTRATE [Concomitant]

REACTIONS (4)
  - ECCHYMOSIS [None]
  - MENINGORRHAGIA [None]
  - PERIORBITAL HAEMATOMA [None]
  - TRAUMATIC BRAIN INJURY [None]
